FAERS Safety Report 4733010-5 (Version None)
Quarter: 2005Q3

REPORT INFORMATION
  Report Type: 
  Country: None (occurrence: None)
  Receive Date: 20050801
  Receipt Date: 20050719
  Transmission Date: 20060218
  Serious: Yes (Hospitalization)
  Sender: FDA-Public Use
  Company Number: 2005104630

PATIENT
  Age: 55 Year
  Sex: Female

DRUGS (4)
  1. CELECOXIB (CELECOXIB) [Suspect]
     Indication: OSTEOARTHRITIS
     Dosage: 100 MG (100 MG, 1 IN 1 D), ORAL
     Route: 048
     Dates: start: 20050520, end: 20050525
  2. GLIPIZIDE [Concomitant]
  3. AMITRIPTYLINE HCL [Concomitant]
  4. CO-DYDRAMOL (DIHYDROCODEINE BITARTRATE, PARACETAMOL) [Concomitant]

REACTIONS (5)
  - DUODENITIS [None]
  - HAEMATEMESIS [None]
  - HAEMOGLOBIN DECREASED [None]
  - MELAENA [None]
  - REFLUX OESOPHAGITIS [None]
